FAERS Safety Report 8567689-7 (Version None)
Quarter: 2012Q3

REPORT INFORMATION
  Report Type: 
  Country: None (occurrence: None)
  Receive Date: 20120803
  Receipt Date: 20120723
  Transmission Date: 20120928
  Serious: Yes (Other)
  Sender: FDA-Public Use
  Company Number: US-ELI_LILLY_AND_COMPANY-US201207007296

PATIENT
  Sex: Male

DRUGS (5)
  1. CYMBALTA [Suspect]
     Indication: PAIN
     Dosage: 120MG, DAILY
  2. METHADONE HCL [Concomitant]
     Dosage: 20MG TID
  3. LIDODERM [Concomitant]
     Dosage: ONCE DAILY
     Route: 062
  4. CARBIDOPA AND LEVODOPA [Concomitant]
     Dosage: 1 DF, QD
  5. ROPINIROLE [Concomitant]
     Dosage: 0.5MG, TID

REACTIONS (1)
  - GASTROSTOMY TUBE INSERTION [None]
